FAERS Safety Report 4916432-9 (Version None)
Quarter: 2006Q1

REPORT INFORMATION
  Report Type: 
  Country: None (occurrence: None)
  Receive Date: 20060214
  Receipt Date: 20060203
  Transmission Date: 20060701
  Serious: Yes (Other)
  Sender: FDA-Public Use
  Company Number: 199909247GDS

PATIENT
  Age: 42 Year
  Sex: Female

DRUGS (3)
  1. CIPRO [Suspect]
     Indication: CELLULITIS
     Dosage: 1000 MG, TOTAL DAILY, ORAL
     Route: 048
     Dates: start: 19990628, end: 19990722
  2. CIPRO [Suspect]
     Indication: JOINT ABSCESS
     Dosage: 1000 MG, TOTAL DAILY, ORAL
     Route: 048
     Dates: start: 19990628, end: 19990722
  3. CLOXACILLIN [Concomitant]

REACTIONS (3)
  - DIABETES MELLITUS [None]
  - PANCREATITIS [None]
  - SERUM SICKNESS [None]
